FAERS Safety Report 20503631 (Version 1)
Quarter: 2022Q1

REPORT INFORMATION
  Report Type: Report from Study
  Country: US (occurrence: US)
  Receive Date: 20220222
  Receipt Date: 20220222
  Transmission Date: 20220423
  Serious: Yes (Other)
  Sender: FDA-Public Use
  Company Number: US-MYLANLABS-2022M1011851

PATIENT
  Sex: Female
  Weight: 61.69 kg

DRUGS (2)
  1. GLATIRAMER ACETATE [Suspect]
     Active Substance: GLATIRAMER ACETATE
     Indication: Relapsing-remitting multiple sclerosis
     Dosage: UNK, 3XW
     Dates: start: 202110
  2. PREDNISONE [Concomitant]
     Active Substance: PREDNISONE
     Dosage: UNK

REACTIONS (6)
  - Multiple sclerosis [Unknown]
  - Drug ineffective [Unknown]
  - Limb discomfort [Unknown]
  - Hypoaesthesia [Unknown]
  - Pain [Unknown]
  - Injection site pain [Unknown]
